FAERS Safety Report 9326016 (Version 1)
Quarter: 2013Q2

REPORT INFORMATION
  Report Type: Report from Study
  Country: CL (occurrence: CL)
  Receive Date: 20130604
  Receipt Date: 20130604
  Transmission Date: 20140414
  Serious: Yes (Hospitalization, Other)
  Sender: FDA-Public Use
  Company Number: CL-SANOFI-AVENTIS-2013SA049696

PATIENT
  Age: 62 Year
  Sex: Male
  Weight: 79.2 kg

DRUGS (11)
  1. CABAZITAXEL [Suspect]
     Indication: PROSTATE CANCER METASTATIC
     Route: 042
     Dates: start: 20130121, end: 20130121
  2. CABAZITAXEL [Suspect]
     Indication: PROSTATE CANCER METASTATIC
     Route: 042
     Dates: start: 20130502, end: 20130502
  3. PREDNISONE [Suspect]
     Indication: PROSTATE CANCER METASTATIC
     Route: 048
     Dates: start: 20130121, end: 20130512
  4. METFORMINA [Concomitant]
     Route: 048
     Dates: start: 200704
  5. ATORVASTATIN [Concomitant]
     Route: 048
     Dates: start: 201110
  6. ACETAMINOPHEN [Concomitant]
     Route: 048
     Dates: start: 201210
  7. TRAMADOL [Concomitant]
     Route: 048
     Dates: start: 201210
  8. DIPIRONA [Concomitant]
     Route: 048
     Dates: start: 201210
  9. PREDNISONA [Concomitant]
     Route: 048
     Dates: start: 20130121
  10. AMINOMUX [Concomitant]
     Route: 042
     Dates: start: 20121015
  11. LOPERAMIDE [Concomitant]
     Route: 048
     Dates: start: 20130103

REACTIONS (1)
  - Urinary tract inflammation [Recovered/Resolved]
